FAERS Safety Report 11883371 (Version 1)
Quarter: 2015Q4

REPORT INFORMATION
  Report Type: Spontaneous
  Country: US (occurrence: US)
  Receive Date: 20151231
  Receipt Date: 20151231
  Transmission Date: 20160305
  Serious: No
  Sender: FDA-Public Use
  Company Number: US-PFIZER INC-2015462455

PATIENT
  Age: 55 Year
  Sex: Male

DRUGS (4)
  1. LISINOPRIL. [Concomitant]
     Active Substance: LISINOPRIL
     Indication: HYPERTENSION
     Dosage: 5 MG, 1X/DAY, 10MG TABLET 0.5 TABLET ONCE A DAY
  2. OXYCODONE [Concomitant]
     Active Substance: OXYCODONE
     Indication: PAIN
     Dosage: 5 MG, AS NEEDED, 5MG TWICE A DAY AS NEEDED
  3. GLIPIZIDE XL [Suspect]
     Active Substance: GLIPIZIDE
     Indication: DIABETES MELLITUS
     Dosage: 5 MG, DAILY
     Route: 048
  4. TRAZODONE [Concomitant]
     Active Substance: TRAZODONE HYDROCHLORIDE
     Indication: INSOMNIA
     Dosage: 100 MG, AT BEDTIME

REACTIONS (1)
  - Diarrhoea [Not Recovered/Not Resolved]
